FAERS Safety Report 5940797-2 (Version None)
Quarter: 2008Q4

REPORT INFORMATION
  Report Type: 
  Country: None (occurrence: None)
  Receive Date: 20081104
  Receipt Date: 20081022
  Transmission Date: 20090506
  Serious: Yes (Hospitalization, Other)
  Sender: FDA-Public Use
  Company Number: CA-ELI_LILLY_AND_COMPANY-CA200809002568

PATIENT
  Age: 71 Year
  Sex: Female

DRUGS (6)
  1. FORTEO [Suspect]
     Indication: OSTEOPOROSIS
     Dosage: 20 UG, DAILY (1/D)
     Route: 058
     Dates: start: 20080402, end: 20080902
  2. PREDNISONE TAB [Concomitant]
  3. CALCIUM [Concomitant]
  4. TYLENOL                                 /SCH/ [Concomitant]
  5. ARAVA [Concomitant]
     Dates: start: 20080901
  6. STRESSTABS [Concomitant]

REACTIONS (8)
  - BODY TEMPERATURE INCREASED [None]
  - DIARRHOEA [None]
  - GAIT DISTURBANCE [None]
  - NAUSEA [None]
  - OEDEMA PERIPHERAL [None]
  - PAIN [None]
  - SWELLING [None]
  - WHITE BLOOD CELL COUNT DECREASED [None]
